FAERS Safety Report 5747989-6 (Version None)
Quarter: 2008Q2

REPORT INFORMATION
  Report Type: 
  Country: None (occurrence: None)
  Receive Date: 20080523
  Receipt Date: 20080516
  Transmission Date: 20081010
  Serious: Yes (Hospitalization, Congenital Anomaly, Other)
  Sender: FDA-Public Use
  Company Number: GB-ABBOTT-08P-167-0439874-00

PATIENT
  Sex: Male

DRUGS (1)
  1. VALPROIC ACID [Suspect]
     Indication: DRUG EXPOSURE DURING PREGNANCY
     Route: 064

REACTIONS (28)
  - CACHEXIA [None]
  - CLAVICLE FRACTURE [None]
  - CLUMSY CHILD SYNDROME [None]
  - COGNITIVE DISORDER [None]
  - CONGENITAL EYELID MALFORMATION [None]
  - CONGENITAL HAND MALFORMATION [None]
  - CONGENITAL NOSE MALFORMATION [None]
  - DEFORMITY THORAX [None]
  - DEVELOPMENTAL DELAY [None]
  - DRUG EXPOSURE DURING PREGNANCY [None]
  - DYSMORPHISM [None]
  - EAR DISORDER [None]
  - EXPRESSIVE LANGUAGE DISORDER [None]
  - FAILURE TO THRIVE [None]
  - FOETAL ANTICONVULSANT SYNDROME [None]
  - HAEMANGIOMA [None]
  - HIGH ARCHED PALATE [None]
  - HYPERACUSIS [None]
  - HYPERMOBILITY SYNDROME [None]
  - INFECTION [None]
  - LIP DISORDER [None]
  - MARASMUS [None]
  - MIXED RECEPTIVE-EXPRESSIVE LANGUAGE DISORDER [None]
  - RETRACTED NIPPLE [None]
  - SKULL MALFORMATION [None]
  - SPEECH DISORDER [None]
  - SPEECH DISORDER DEVELOPMENTAL [None]
  - STRABISMUS CONGENITAL [None]
